FAERS Safety Report 9781380 (Version 1)
Quarter: 2013Q4

REPORT INFORMATION
  Report Type: Spontaneous
  Country: US (occurrence: None)
  Receive Date: 20131223
  Receipt Date: 20131223
  Transmission Date: 20140711
  Serious: Yes (Life-Threatening, Hospitalization)
  Sender: FDA-Public Use
  Company Number: None

PATIENT
  Age: 64 Year
  Sex: Male
  Weight: 103 kg

DRUGS (1)
  1. RIVAROXABAN 15 MG JANSSEN [Suspect]
     Indication: ATRIAL FIBRILLATION
     Dosage: MONTH,1 PILL, QD, ORAL
     Route: 048

REACTIONS (2)
  - Renal haematoma [None]
  - Haemoglobin decreased [None]
